FAERS Safety Report 26089553 (Version 2)
Quarter: 2025Q4

REPORT INFORMATION
  Report Type: Spontaneous
  Country: GB (occurrence: GB)
  Receive Date: 20251125
  Receipt Date: 20251218
  Transmission Date: 20260117
  Serious: Yes (Hospitalization, Other)
  Sender: ELI LILLY AND COMPANY
  Company Number: None

PATIENT
  Sex: Female
  Weight: 70 kg

DRUGS (1)
  1. MOUNJARO [Suspect]
     Active Substance: TIRZEPATIDE
     Indication: Weight control
     Dosage: 5MG
     Route: 065
     Dates: start: 20250815, end: 20251115

REACTIONS (6)
  - Hepatic function abnormal [Unknown]
  - Coagulation time shortened [Recovering/Resolving]
  - Hepatic failure [Recovering/Resolving]
  - Jaundice [Recovering/Resolving]
  - Decreased appetite [Unknown]
  - Malaise [Not Recovered/Not Resolved]

NARRATIVE: CASE EVENT DATE: 20251114
